FAERS Safety Report 22314011 (Version 1)
Quarter: 2023Q2

REPORT INFORMATION
  Report Type: Report from Study
  Country: US (occurrence: US)
  Receive Date: 20230512
  Receipt Date: 20230512
  Transmission Date: 20230722
  Serious: No
  Sender: FDA-Public Use
  Company Number: US-002147023-NVSC2023US106286

PATIENT
  Sex: Female

DRUGS (5)
  1. CLOBETASOL [Suspect]
     Active Substance: CLOBETASOL
     Indication: Psoriasis
     Route: 061
  2. CLOBETASOL PROPIONATE [Suspect]
     Active Substance: CLOBETASOL PROPIONATE
     Indication: Psoriasis
     Route: 061
  3. LEVOTHYROXINE [Suspect]
     Active Substance: LEVOTHYROXINE
     Indication: Product used for unknown indication
     Route: 048
  4. LISINOPRIL [Suspect]
     Active Substance: LISINOPRIL
     Indication: Product used for unknown indication
     Route: 048
  5. OTEZLA [Suspect]
     Active Substance: APREMILAST
     Indication: Product used for unknown indication
     Dosage: UNK
     Route: 065

REACTIONS (2)
  - Joint swelling [Unknown]
  - Psoriasis [Unknown]
